FAERS Safety Report 4733385-7 (Version None)
Quarter: 2005Q3

REPORT INFORMATION
  Report Type: 
  Country: None (occurrence: None)
  Receive Date: 20050801
  Receipt Date: 20050719
  Transmission Date: 20060218
  Serious: Yes (Other)
  Sender: FDA-Public Use
  Company Number: 2005095162

PATIENT
  Age: 73 Year
  Sex: Female

DRUGS (2)
  1. CELEBREX [Suspect]
     Indication: POLYMYALGIA
     Dosage: 200 MG (200 MG 1 IN 1 D) ORAL
     Route: 048
     Dates: start: 20041101, end: 20050119
  2. BEXTRA [Suspect]
     Indication: POLYMYALGIA
     Dosage: 10 MG (10 MG) ORAL
     Route: 048
     Dates: start: 20040901, end: 20041019

REACTIONS (1)
  - KNEE ARTHROPLASTY [None]
